FAERS Safety Report 7950208-3 (Version None)
Quarter: 2011Q4

REPORT INFORMATION
  Report Type: 
  Country: None (occurrence: None)
  Receive Date: 20111130
  Receipt Date: 20111122
  Transmission Date: 20120403
  Serious: Yes (Hospitalization, Other)
  Sender: FDA-Public Use
  Company Number: US-B.I. PHARMACEUTICALS,INC./RIDGEFIELD-2011-BP-24943BP

PATIENT
  Age: 85 Year
  Sex: Female

DRUGS (12)
  1. POTASSIUM CHLORIDE [Concomitant]
  2. LASIX [Concomitant]
  3. LOVENOX [Concomitant]
  4. PRADAXA [Suspect]
     Indication: ATRIAL FIBRILLATION
  5. CARDIZEM CD [Concomitant]
  6. TIMOLOL MALEATE [Concomitant]
  7. OMEPRAZOLE [Concomitant]
  8. DIGOXIN [Concomitant]
  9. LIPITOR [Concomitant]
  10. METOPROLOL TARTRATE [Concomitant]
  11. PRADAXA [Suspect]
     Indication: CEREBROVASCULAR ACCIDENT PROPHYLAXIS
     Dosage: 300 MG
     Dates: start: 20110513, end: 20110906
  12. XALATAN [Concomitant]

REACTIONS (5)
  - BLINDNESS [None]
  - MUSCULAR WEAKNESS [None]
  - HEMIANOPIA [None]
  - ATRIAL THROMBOSIS [None]
  - EMBOLIC STROKE [None]
